FAERS Safety Report 17014425 (Version 1)
Quarter: 2019Q4

REPORT INFORMATION
  Report Type: Report from Study
  Country: FR (occurrence: FR)
  Receive Date: 20191111
  Receipt Date: 20191111
  Transmission Date: 20200122
  Serious: Yes (Hospitalization)
  Sender: FDA-Public Use
  Company Number: FR-ROCHE-2220431

PATIENT
  Age: 53 Year
  Sex: Female

DRUGS (3)
  1. CISPLATIN. [Suspect]
     Active Substance: CISPLATIN
     Indication: METASTATIC RENAL CELL CARCINOMA
     Dosage: CUMULATIVE DOSE SINCE FIRST ADMINISTRATION: 238 MG ?DATE OF LAST DOSE ADMINISTERED PRIOR TO ONSET OF
     Route: 042
     Dates: start: 20181018
  2. GEMCITABINE. [Suspect]
     Active Substance: GEMCITABINE
     Indication: METASTATIC RENAL CELL CARCINOMA
     Dosage: CUMULATIVE DOSE SINCE FIRST ADMINISTRATION: 6350 MG?DATE OF LAST DOSE ADMINISTERED PRIOR TO ONSET OF
     Route: 042
     Dates: start: 20181018
  3. BEVACIZUMAB. [Suspect]
     Active Substance: BEVACIZUMAB
     Indication: METASTATIC RENAL CELL CARCINOMA
     Dosage: CUMULATIVE DOSE SINCE FIRST ADMINISTRATION: 1900 MG?DATE OF LAST DOSE ADMINISTERED PRIOR TO ONSET OF
     Route: 042
     Dates: start: 20181018

REACTIONS (2)
  - Pain management [Recovering/Resolving]
  - Pain management [Recovering/Resolving]

NARRATIVE: CASE EVENT DATE: 20181120
